FAERS Safety Report 8834325 (Version 3)
Quarter: 2012Q4

REPORT INFORMATION
  Report Type: 
  Country: JP (occurrence: JP)
  Receive Date: 20121010
  Receipt Date: 20121023
  Transmission Date: 20130627
  Serious: Yes (Other)
  Sender: FDA-Public Use
  Company Number: JP-PFIZER INC-2012247716

PATIENT
  Age: 71 Year
  Sex: Male

DRUGS (2)
  1. MORPHINE SULFATE [Suspect]
     Indication: BACK PAIN
     Dosage: 20 mg, daily
     Route: 048
     Dates: start: 19921210
  2. MORPHINE SULFATE [Suspect]
     Dosage: 10 mg, daily
     Route: 048
     Dates: end: 19930106

REACTIONS (2)
  - Toxicity to various agents [Unknown]
  - Depressed level of consciousness [Unknown]
